FAERS Safety Report 8543922-2 (Version None)
Quarter: 2012Q3

REPORT INFORMATION
  Report Type: 
  Country: None (occurrence: None)
  Receive Date: 20120727
  Receipt Date: 20120724
  Transmission Date: 20120928
  Serious: No
  Sender: FDA-Public Use
  Company Number: US-TEVA-350124USA

PATIENT
  Sex: Female

DRUGS (10)
  1. WARFARIN SODIUM [Concomitant]
  2. PROAIR HFA [Suspect]
     Indication: COUGH
  3. PROAIR HFA [Suspect]
     Indication: WHEEZING
  4. LEVOTHYROXINE SODIUM [Concomitant]
  5. CELEBREX [Concomitant]
  6. CYCLOBENAZPRINE [Concomitant]
  7. PROAIR HFA [Suspect]
     Indication: DYSPNOEA
     Route: 055
     Dates: start: 20120626
  8. ESTRADIOL [Concomitant]
  9. METOPROLOL SUCCINATE [Concomitant]
  10. LISINOPRIL [Concomitant]

REACTIONS (1)
  - ALOPECIA [None]
